FAERS Safety Report 21825679 (Version 1)
Quarter: 2023Q1

REPORT INFORMATION
  Report Type: Spontaneous
  Country: US (occurrence: US)
  Receive Date: 20230105
  Receipt Date: 20230105
  Transmission Date: 20230418
  Serious: No
  Sender: FDA-Public Use
  Company Number: US-MTPC-MTDA2022-0035225

PATIENT
  Sex: Male

DRUGS (2)
  1. RADICAVA [Suspect]
     Active Substance: EDARAVONE
     Indication: Product used for unknown indication
     Dosage: UNK MAINTENANCE DOSE
     Route: 065
  2. RADICAVA [Suspect]
     Active Substance: EDARAVONE
     Indication: Product used for unknown indication
     Dosage: UNK MAINTENANCE DOSE
     Route: 065

REACTIONS (4)
  - Speech disorder [Unknown]
  - Oxygen saturation decreased [Unknown]
  - Muscular weakness [Unknown]
  - Condition aggravated [Unknown]
